FAERS Safety Report 7684962-5 (Version None)
Quarter: 2011Q3

REPORT INFORMATION
  Report Type: 
  Country: None (occurrence: None)
  Receive Date: 20110816
  Receipt Date: 20101026
  Transmission Date: 20111222
  Serious: No
  Sender: FDA-Public Use
  Company Number: US-MYLANLABS-2010S1019903

PATIENT
  Age: 79 Year
  Sex: Female

DRUGS (9)
  1. ISOSORBIDE DINITRATE [Concomitant]
  2. CHROMIUM CHLORIDE [Concomitant]
  3. NIASPAN [Concomitant]
  4. VITAMIN B-12 [Concomitant]
  5. PLAVIX [Concomitant]
  6. NEURONTIN [Concomitant]
  7. MELOXICAM [Suspect]
     Indication: OSTEOARTHRITIS
     Route: 048
     Dates: start: 20101001, end: 20101021
  8. CYMBALTA [Concomitant]
  9. CRESTOR [Concomitant]

REACTIONS (3)
  - ARTHRALGIA [None]
  - DRUG INEFFECTIVE [None]
  - PAIN IN JAW [None]
